FAERS Safety Report 13885567 (Version 2)
Quarter: 2017Q3

REPORT INFORMATION
  Report Type: Report from Study
  Country: None (occurrence: AR)
  Receive Date: 20170821
  Receipt Date: 20170821
  Transmission Date: 20171127
  Serious: Yes (Other)
  Sender: FDA-Public Use
  Company Number: AR-ABBVIE-17P-007-2076443-00

PATIENT
  Age: 59 Year
  Sex: Male

DRUGS (1)
  1. VIEKIRA PAK [Suspect]
     Active Substance: DASABUVIR\OMBITASVIR\PARITAPREVIR\RITONAVIR
     Indication: HEPATITIS C
     Dosage: 3 IN THE MORNING AND ONE AT NIGHT
     Route: 048
     Dates: start: 20170630

REACTIONS (1)
  - Renal haematoma [Not Recovered/Not Resolved]

NARRATIVE: CASE EVENT DATE: 201707
